FAERS Safety Report 26218362 (Version 1)
Quarter: 2025Q4

REPORT INFORMATION
  Report Type: Spontaneous
  Country: EU (occurrence: EU)
  Receive Date: 20251231
  Receipt Date: 20251231
  Transmission Date: 20260118
  Serious: Yes (Other)
  Sender: PFIZER
  Company Number: EU-GLAXOSMITHKLINE-FR2020GSK179406

PATIENT
  Age: 66 Year
  Sex: Female
  Weight: 47.4 kg

DRUGS (14)
  1. CARBOPLATIN [Suspect]
     Active Substance: CARBOPLATIN
     Indication: Ovarian cancer
     Dosage: 395 MG
     Route: 042
     Dates: start: 20191011
  2. CARBOPLATIN [Suspect]
     Active Substance: CARBOPLATIN
     Dosage: 422 MG
     Route: 042
     Dates: start: 20191031
  3. CARBOPLATIN [Suspect]
     Active Substance: CARBOPLATIN
     Dosage: 421 MG
     Route: 042
     Dates: start: 20191121
  4. CARBOPLATIN [Suspect]
     Active Substance: CARBOPLATIN
     Dosage: 412 MG
     Route: 042
     Dates: start: 20191211
  5. CARBOPLATIN [Suspect]
     Active Substance: CARBOPLATIN
     Dosage: 327 MG
     Route: 042
     Dates: start: 20200224
  6. PACLITAXEL [Suspect]
     Active Substance: PACLITAXEL
     Indication: Ovarian cancer
     Dosage: 267.75 MG
     Route: 042
     Dates: start: 20191011
  7. PACLITAXEL [Suspect]
     Active Substance: PACLITAXEL
     Dosage: 260.75 MG
     Route: 042
     Dates: start: 20191031
  8. PACLITAXEL [Suspect]
     Active Substance: PACLITAXEL
     Dosage: 252 MG
     Route: 042
     Dates: start: 20200224
  9. BEVACIZUMAB [Suspect]
     Active Substance: BEVACIZUMAB
     Indication: Ovarian cancer
     Dosage: UNK
     Route: 042
     Dates: start: 20200410
  10. BEVACIZUMAB [Suspect]
     Active Substance: BEVACIZUMAB
     Dosage: 624 MG/KG
     Route: 042
     Dates: start: 20200814
  11. DOSTARLIMAB [Suspect]
     Active Substance: DOSTARLIMAB
     Indication: Ovarian cancer
     Dosage: 500 MG
     Dates: start: 20191031
  12. DOSTARLIMAB [Suspect]
     Active Substance: DOSTARLIMAB
     Dosage: 1000 MG
     Dates: start: 20200814, end: 20200814
  13. NIRAPARIB [Suspect]
     Active Substance: NIRAPARIB
     Indication: Ovarian cancer
     Dosage: 200 MG
     Dates: start: 20200410
  14. PENICILLIN V [Concomitant]
     Active Substance: PENICILLIN V
     Indication: Postoperative care
     Dosage: 1 DF, 2X/DAY, EVERY 12 HOURS
     Route: 048
     Dates: start: 20200810

REACTIONS (1)
  - Transaminases increased [Recovered/Resolved]

NARRATIVE: CASE EVENT DATE: 20200902
